FAERS Safety Report 8783682 (Version 1)
Quarter: 2012Q4

REPORT INFORMATION
  Report Type: Report from Study
  Country: US (occurrence: US)
  Receive Date: 20120913
  Receipt Date: 20120913
  Transmission Date: 20130627
  Serious: No
  Sender: FDA-Public Use
  Company Number: US-VERTEX PHARMACEUTICAL INC.-AE-2012-009126

PATIENT
  Sex: Male
  Weight: 90.91 kg

DRUGS (1)
  1. INCIVEK [Suspect]
     Indication: HEPATITIS C
     Route: 048

REACTIONS (6)
  - Headache [Unknown]
  - Abdominal discomfort [Unknown]
  - Rash [Unknown]
  - Haematochezia [Unknown]
  - Proctalgia [Unknown]
  - Frequent bowel movements [Unknown]
